FAERS Safety Report 21996026 (Version 1)
Quarter: 2023Q1

REPORT INFORMATION
  Report Type: Spontaneous
  Country: CN (occurrence: CN)
  Receive Date: 20230215
  Receipt Date: 20230215
  Transmission Date: 20230418
  Serious: Yes (Hospitalization, Other)
  Sender: FDA-Public Use
  Company Number: None

PATIENT
  Age: 65 Year
  Sex: Male

DRUGS (3)
  1. MANNITOL [Suspect]
     Active Substance: MANNITOL
     Indication: Reduction of increased intracranial pressure
     Dosage: 100 MILLILITERS (ML) 3 TIMES DAILY
     Route: 041
     Dates: start: 20230111, end: 20230114
  2. MANNITOL [Suspect]
     Active Substance: MANNITOL
     Indication: Diuretic therapy
  3. FRUCTOSE\GLYCERIN [Suspect]
     Active Substance: FRUCTOSE\GLYCERIN
     Indication: Diuretic therapy
     Dosage: 250 MILLILITERS, 2 TIMES DAILY (Q12H)
     Route: 065
     Dates: start: 20230106, end: 20230111

REACTIONS (2)
  - Renal impairment [Recovering/Resolving]
  - Blood creatinine increased [Recovering/Resolving]

NARRATIVE: CASE EVENT DATE: 20230114
